FAERS Safety Report 12155234 (Version 1)
Quarter: 2016Q1

REPORT INFORMATION
  Report Type: Spontaneous
  Country: US (occurrence: None)
  Receive Date: 20160304
  Receipt Date: 20160304
  Transmission Date: 20160526
  Serious: No
  Sender: FDA-Public Use
  Company Number: None

PATIENT
  Age: 68 Year
  Sex: Male
  Weight: 74.1 kg

DRUGS (1)
  1. AMOXICILLIN/CLAVULANATE [Suspect]
     Active Substance: AMOXICILLIN\CLAVULANATE POTASSIUM
     Indication: CELLULITIS
     Dosage: 875/125MG BID PO
     Route: 048
     Dates: start: 20160107, end: 20160117

REACTIONS (11)
  - Renal atrophy [None]
  - Hepatic steatosis [None]
  - Aspartate aminotransferase increased [None]
  - Alanine aminotransferase increased [None]
  - Liver scan abnormal [None]
  - Blood bilirubin increased [None]
  - Treatment noncompliance [None]
  - Urethral pain [None]
  - Flank pain [None]
  - Chromaturia [None]
  - Cholestasis [None]

NARRATIVE: CASE EVENT DATE: 20160126
